FAERS Safety Report 19852970 (Version 1)
Quarter: 2021Q3

REPORT INFORMATION
  Report Type: Spontaneous
  Country: US (occurrence: US)
  Receive Date: 20210919
  Receipt Date: 20210919
  Transmission Date: 20211014
  Serious: No
  Sender: FDA-Public Use
  Company Number: US-SA-2021SA302402

PATIENT
  Age: 19 Year
  Sex: Male

DRUGS (1)
  1. DUPIXENT [Suspect]
     Active Substance: DUPILUMAB
     Indication: ECZEMA HERPETICUM
     Dosage: 300MG/2ML, 300 MG, QOW
     Route: 058
     Dates: start: 202108

REACTIONS (2)
  - Product use in unapproved indication [Unknown]
  - Eczema [Unknown]

NARRATIVE: CASE EVENT DATE: 202108
